FAERS Safety Report 6593758-7 (Version None)
Quarter: 2010Q1

REPORT INFORMATION
  Report Type: 
  Country: None (occurrence: None)
  Receive Date: 20100212
  Receipt Date: 20100203
  Transmission Date: 20100710
  Serious: Yes (Other)
  Sender: FDA-Public Use
  Company Number: WAES 0912USA03744

PATIENT
  Age: 79 Year
  Sex: Female

DRUGS (4)
  1. ZETIA [Suspect]
     Indication: HYPERCHOLESTEROLAEMIA
     Dosage: 10MG/DAILY, PO
     Route: 048
     Dates: start: 20080129, end: 20080410
  2. ASPIRIN [Concomitant]
  3. BENIDIPINE HYDROCHLORIDE [Concomitant]
  4. METILDIGOXIN [Concomitant]

REACTIONS (3)
  - CEREBRAL INFARCTION [None]
  - GLYCOSYLATED HAEMOGLOBIN INCREASED [None]
  - HIGH DENSITY LIPOPROTEIN DECREASED [None]
